FAERS Safety Report 13119356 (Version 2)
Quarter: 2017Q1

REPORT INFORMATION
  Report Type: Report from Study
  Country: KR (occurrence: KR)
  Receive Date: 20170116
  Receipt Date: 20170302
  Transmission Date: 20170428
  Serious: Yes (Other)
  Sender: FDA-Public Use
  Company Number: KR-ELI_LILLY_AND_COMPANY-KR201612003951

PATIENT
  Age: 72 Year
  Sex: Female
  Weight: 50 kg

DRUGS (8)
  1. INSULIN, LISPRO [Suspect]
     Active Substance: INSULIN LISPRO
     Dosage: 10 IU, EACH MORNING
     Route: 058
  2. INSULIN, LISPRO [Suspect]
     Active Substance: INSULIN LISPRO
     Dosage: 14 IU, BID
     Route: 058
  3. INSULIN, LISPRO [Suspect]
     Active Substance: INSULIN LISPRO
     Indication: DIABETES MELLITUS
     Dosage: 16 IU, BID
     Route: 058
     Dates: start: 20161130, end: 20161206
  4. INSULIN, LISPRO [Suspect]
     Active Substance: INSULIN LISPRO
     Dosage: 8 IU, BID
     Route: 058
     Dates: start: 20161212
  5. INSULIN, LISPRO [Suspect]
     Active Substance: INSULIN LISPRO
     Dosage: 12 IU, EACH EVENING
     Route: 058
  6. INSULIN, LISPRO [Suspect]
     Active Substance: INSULIN LISPRO
     Dosage: 4 IU, EACH EVENING
     Route: 058
  7. INSULIN, LISPRO [Suspect]
     Active Substance: INSULIN LISPRO
     Dosage: 14 IU, EACH MORNING
     Route: 058
  8. INSULIN, LISPRO [Suspect]
     Active Substance: INSULIN LISPRO
     Dosage: 14 IU, BID
     Route: 058
     Dates: start: 20161207

REACTIONS (8)
  - Hunger [Not Recovered/Not Resolved]
  - Blood glucose fluctuation [Recovered/Resolved]
  - Sleep disorder [Unknown]
  - Hypoglycaemic unconsciousness [Not Recovered/Not Resolved]
  - Incorrect dose administered [Not Recovered/Not Resolved]
  - Fall [Unknown]
  - Blood glucose increased [Not Recovered/Not Resolved]
  - Hypoglycaemia [Not Recovered/Not Resolved]

NARRATIVE: CASE EVENT DATE: 2016
